FAERS Safety Report 9255019 (Version 2)
Quarter: 2014Q1

REPORT INFORMATION
  Report Type: Spontaneous
  Country: US (occurrence: US)
  Receive Date: 20130425
  Receipt Date: 20140113
  Transmission Date: 20141002
  Serious: Yes (Hospitalization, Disabling)
  Sender: FDA-Public Use
  Company Number: US-ASTRAZENECA-2013SE27458

PATIENT
  Age: 53 Year
  Sex: Female
  Weight: 65.8 kg

DRUGS (19)
  1. NEXIUM [Suspect]
     Indication: DYSPEPSIA
     Route: 048
  2. NEXIUM [Suspect]
     Indication: DYSPEPSIA
     Route: 048
     Dates: start: 20090804
  3. TUMS [Concomitant]
     Dosage: AS NEEDED, OTC
     Dates: start: 201212
  4. DIABETIC PILLS [Concomitant]
  5. EFFEXOR [Concomitant]
     Dates: start: 20090804
  6. METOPROLOL TARTRATE [Concomitant]
     Dates: start: 20090804
  7. TRAZADONE [Concomitant]
     Dates: start: 20090804
  8. HYDROCODONE W/ACETAMINOPHEN [Concomitant]
     Dates: start: 20070126
  9. PAROXETINE [Concomitant]
     Dates: start: 20080305
  10. TRAMADOL HCL [Concomitant]
     Dates: start: 20080412
  11. LISINOPRIL [Concomitant]
     Dates: start: 20080305
  12. LOVASTATIN [Concomitant]
     Dates: start: 20090804
  13. GABAPENTIN [Concomitant]
     Dates: start: 20100202
  14. FUROSEMIDE [Concomitant]
     Dates: start: 20090901
  15. CITALOPRAM [Concomitant]
     Dates: start: 20090520
  16. NAPROXEN [Concomitant]
     Dates: start: 20101108
  17. METHADONE [Concomitant]
     Dates: start: 20061118
  18. PROMETHAZINE [Concomitant]
     Dates: start: 20100715
  19. ALPRAZOLAM [Concomitant]
     Dates: start: 20061203

REACTIONS (15)
  - Blindness [Unknown]
  - Disability [Unknown]
  - Blister infected [Unknown]
  - Clavicle fracture [Unknown]
  - Upper limb fracture [Not Recovered/Not Resolved]
  - Pneumocystis jirovecii pneumonia [Unknown]
  - Osteoporosis [Unknown]
  - Multiple fractures [Unknown]
  - Bone disorder [Unknown]
  - Calcium deficiency [Unknown]
  - Cataract [Unknown]
  - Diabetes mellitus [Unknown]
  - Shoulder deformity [Unknown]
  - Vitamin D deficiency [Unknown]
  - Depression [Unknown]
